FAERS Safety Report 14531166 (Version 3)
Quarter: 2018Q1

REPORT INFORMATION
  Report Type: Spontaneous
  Country: US (occurrence: US)
  Receive Date: 20180214
  Receipt Date: 20180314
  Transmission Date: 20180509
  Serious: Yes (Life-Threatening, Hospitalization, Disabling, Other)
  Sender: FDA-Public Use
  Company Number: US-009507513-1802USA006403

PATIENT
  Sex: Female

DRUGS (2)
  1. CARBIDOPA (+) LEVODOPA [Suspect]
     Active Substance: CARBIDOPA\LEVODOPA
     Indication: PARKINSON^S DISEASE
     Dosage: UNK
     Route: 048
     Dates: start: 201410, end: 2015
  2. SINEMET [Suspect]
     Active Substance: CARBIDOPA\LEVODOPA
     Indication: PARKINSONISM
     Dosage: UNK
     Route: 048
     Dates: start: 201310, end: 2014

REACTIONS (16)
  - Seizure [Recovered/Resolved]
  - Confusional state [Recovered/Resolved]
  - Shoulder operation [Recovered/Resolved]
  - Staphylococcal infection [Recovered/Resolved]
  - Infection [Recovered/Resolved]
  - Starvation [Recovered/Resolved]
  - Hallucination [Recovered/Resolved]
  - Asthenia [Recovered/Resolved]
  - Dementia with Lewy bodies [Not Recovered/Not Resolved]
  - Amnesia [Recovered/Resolved]
  - Suicidal ideation [Recovered/Resolved]
  - Paranoia [Recovered/Resolved]
  - Gastritis [Recovered/Resolved]
  - Dehydration [Recovered/Resolved]
  - Mental impairment [Recovered/Resolved]
  - Delusion [Recovered/Resolved]

NARRATIVE: CASE EVENT DATE: 2015
